FAERS Safety Report 4463718-0 (Version None)
Quarter: 2004Q3

REPORT INFORMATION
  Report Type: 
  Country: None (occurrence: None)
  Receive Date: 20040929
  Receipt Date: 20040910
  Transmission Date: 20050211
  Serious: Yes (Hospitalization)
  Sender: FDA-Public Use
  Company Number: B0344913A

PATIENT
  Age: 70 Year
  Sex: Male

DRUGS (7)
  1. LITHIUM SALT (FORMULATION UNKNOWN (LITHIUM SALT)   (GENERIC [Suspect]
  2. BETA-BLOCKER [Concomitant]
  3. ASPIRIN [Concomitant]
  4. ACE INHIBITOR [Concomitant]
  5. BENZODIAZEPINES [Concomitant]
  6. HYPNOTIC [Concomitant]
  7. ANTIVTIMINS  K [Concomitant]

REACTIONS (19)
  - APHASIA [None]
  - APRAXIA [None]
  - BLOOD POTASSIUM INCREASED [None]
  - BLOOD PRESSURE DIASTOLIC DECREASED [None]
  - CEREBROVASCULAR ACCIDENT [None]
  - DYSARTHRIA [None]
  - INTERNATIONAL NORMALISED RATIO INCREASED [None]
  - MOTOR DYSFUNCTION [None]
  - MYOCLONUS [None]
  - NODAL RHYTHM [None]
  - NUCLEAR MAGNETIC RESONANCE IMAGING BRAIN ABNORMAL [None]
  - PERSONALITY CHANGE DUE TO A GENERAL MEDICAL CONDITION [None]
  - RENAL IMPAIRMENT [None]
  - SINOATRIAL BLOCK [None]
  - SINUS BRADYCARDIA [None]
  - SOMNOLENCE [None]
  - THERAPEUTIC AGENT TOXICITY [None]
  - TRANSIENT ISCHAEMIC ATTACK [None]
  - ULTRASOUND DOPPLER ABNORMAL [None]
